FAERS Safety Report 18696757 (Version 1)
Quarter: 2021Q1

REPORT INFORMATION
  Report Type: Spontaneous
  Country: US (occurrence: US)
  Receive Date: 20210104
  Receipt Date: 20210104
  Transmission Date: 20210419
  Serious: No
  Sender: FDA-Public Use
  Company Number: US-ROCHE-2611366

PATIENT

DRUGS (2)
  1. CATHFLO ACTIVASE [Suspect]
     Active Substance: ALTEPLASE
     Indication: DEVICE RELATED THROMBOSIS
     Dosage: NO
     Route: 050
  2. ACTIVASE [Suspect]
     Active Substance: ALTEPLASE
     Indication: DEVICE RELATED THROMBOSIS
     Dosage: NO
     Route: 050

REACTIONS (2)
  - Off label use [Unknown]
  - No adverse event [Unknown]
